FAERS Safety Report 12503053 (Version 1)
Quarter: 2016Q2

REPORT INFORMATION
  Report Type: Report from Study
  Country: IT (occurrence: IT)
  Receive Date: 20160628
  Receipt Date: 20160628
  Transmission Date: 20160815
  Serious: Yes (Life-Threatening, Hospitalization)
  Sender: FDA-Public Use
  Company Number: IT-ACCORD-041804

PATIENT
  Age: 66 Year
  Sex: Male
  Weight: 75 kg

DRUGS (4)
  1. FLUOROURACIL ACCORD [Suspect]
     Active Substance: FLUOROURACIL
     Indication: COLORECTAL CANCER METASTATIC
     Dosage: STRENGTH: 50 MG/ML?3200 MG/M2 48 HOURS IN CONTINUOUS INFUSION EVERY 14 DAYS
     Route: 041
     Dates: start: 20160530, end: 20160601
  2. AVASTIN [Concomitant]
     Active Substance: BEVACIZUMAB
     Indication: COLORECTAL CANCER METASTATIC
     Dosage: STRENGTH: 400 MG?5 MG/KG DAY 1 EVERY 14 DAYS
     Route: 042
     Dates: start: 20160530, end: 20160530
  3. IRINOTECAN ACTAVIS [Suspect]
     Active Substance: IRINOTECAN
     Indication: COLORECTAL CANCER METASTATIC
     Dosage: STRENGTH: 20 MG/ML?165 MG/M2 DAY 1 EVERY 14 DAYS
     Route: 045
     Dates: start: 20160530, end: 20160530
  4. OXALIPLATIN SUN [Concomitant]
     Active Substance: OXALIPLATIN
     Indication: COLORECTAL CANCER METASTATIC
     Dosage: STRENGTH: 5 MG/ML?85 MG/M2 DAY1 EVERY 14 DAYS
     Route: 042
     Dates: start: 20160530, end: 20160530

REACTIONS (1)
  - Hypokalaemia [Recovering/Resolving]

NARRATIVE: CASE EVENT DATE: 20160613
